FAERS Safety Report 14034026 (Version 4)
Quarter: 2019Q2

REPORT INFORMATION
  Report Type: Report from Study
  Country: JP (occurrence: JP)
  Receive Date: 20171003
  Receipt Date: 20190411
  Transmission Date: 20190711
  Serious: Yes (Life-Threatening, Hospitalization, Disabling)
  Sender: FDA-Public Use
  Company Number: JP-ACTELION-A-CH2017-159944

PATIENT
  Age: 71 Year
  Sex: Female

DRUGS (11)
  1. FEXOFENADINE HYDROCHLORIDE. [Concomitant]
     Active Substance: FEXOFENADINE HYDROCHLORIDE
  2. MUCOSOLVAN [Concomitant]
     Active Substance: AMBROXOL HYDROCHLORIDE
  3. MAGMITT [Concomitant]
     Active Substance: MAGNESIUM OXIDE
  4. REVATIO [Concomitant]
     Active Substance: SILDENAFIL CITRATE
  5. PARIET [Concomitant]
     Active Substance: RABEPRAZOLE SODIUM
  6. WARFARIN [Concomitant]
     Active Substance: WARFARIN
  7. CRESTOR [Concomitant]
     Active Substance: ROSUVASTATIN CALCIUM
  8. PLAVIX [Concomitant]
     Active Substance: CLOPIDOGREL BISULFATE
  9. OPSUMIT [Suspect]
     Active Substance: MACITENTAN
     Indication: PULMONARY ARTERIAL HYPERTENSION
     Dosage: 10 MG, QD
     Route: 048
     Dates: start: 20160112
  10. CARBOCISTEINE [Concomitant]
     Active Substance: CARBOCYSTEINE
  11. BERASUS [Concomitant]
     Active Substance: BERAPROST SODIUM

REACTIONS (10)
  - Autoimmune encephalopathy [Not Recovered/Not Resolved]
  - Biopsy bone marrow [Unknown]
  - Cardiac pacemaker insertion [Unknown]
  - Eyelid ptosis [Recovering/Resolving]
  - Hypophagia [Not Recovered/Not Resolved]
  - Myasthenia gravis [Recovering/Resolving]
  - Syncope [Recovering/Resolving]
  - Haemoglobin decreased [Recovered/Resolved]
  - Hallucinations, mixed [Not Recovered/Not Resolved]
  - Atrioventricular block complete [Recovering/Resolving]

NARRATIVE: CASE EVENT DATE: 201604
